FAERS Safety Report 14708467 (Version 4)
Quarter: 2018Q2

REPORT INFORMATION
  Report Type: Spontaneous
  Country: PL (occurrence: PL)
  Receive Date: 20180403
  Receipt Date: 20180608
  Transmission Date: 20180711
  Serious: Yes (Other)
  Sender: FDA-Public Use
  Company Number: PL-SA-2018SA049062

PATIENT
  Age: 57 Year
  Sex: Male
  Weight: 86 kg

DRUGS (15)
  1. ZOLPIDEM TARTRATE. [Interacting]
     Active Substance: ZOLPIDEM TARTRATE
     Indication: DIABETES MELLITUS
  2. MIANSERIN [Interacting]
     Active Substance: MIANSERIN
     Indication: INSOMNIA
     Dosage: 20 MG,QD
     Route: 065
  3. DULOXETINE. [Concomitant]
     Active Substance: DULOXETINE
     Indication: PAIN MANAGEMENT
  4. TRAZODONE [Concomitant]
     Active Substance: TRAZODONE HYDROCHLORIDE
  5. BISOCARD [Concomitant]
     Active Substance: BISOPROLOL
  6. DEPREXETIN [Interacting]
     Active Substance: FLUOXETINE HYDROCHLORIDE
     Indication: DIABETES MELLITUS
  7. SIMVASTATIN. [Concomitant]
     Active Substance: SIMVASTATIN
  8. PARACETAMOL [Concomitant]
     Active Substance: ACETAMINOPHEN
  9. DIAZEPAM. [Interacting]
     Active Substance: DIAZEPAM
     Indication: INITIAL INSOMNIA
     Dosage: 10 MG,QD
     Route: 065
  10. ZOFENIL [Concomitant]
     Active Substance: ZOFENOPRIL
  11. ZOLPIDEM TARTRATE. [Suspect]
     Active Substance: ZOLPIDEM TARTRATE
     Indication: INSOMNIA
     Dosage: 10 MG,QD
     Route: 065
     Dates: start: 20171122, end: 20171124
  12. ZOLPIDEM TARTRATE. [Interacting]
     Active Substance: ZOLPIDEM TARTRATE
     Indication: SLEEP DISORDER
  13. ZOLPIDEM TARTRATE. [Interacting]
     Active Substance: ZOLPIDEM TARTRATE
     Indication: FIBROMYALGIA
  14. DEPREXETIN [Interacting]
     Active Substance: FLUOXETINE HYDROCHLORIDE
     Indication: FIBROMYALGIA
     Dosage: 40 MG,QD
     Route: 065
     Dates: start: 20171103, end: 20171122
  15. METFORMIN [Concomitant]
     Active Substance: METFORMIN HYDROCHLORIDE
     Indication: TYPE 2 DIABETES MELLITUS

REACTIONS (14)
  - Somnolence [Recovered/Resolved]
  - Nightmare [Recovered/Resolved]
  - Impaired self-care [Unknown]
  - Abnormal dreams [None]
  - Drug interaction [Unknown]
  - Dry mouth [Recovering/Resolving]
  - Poor quality sleep [Recovered/Resolved]
  - Off label use [Unknown]
  - Sleep disorder [Recovering/Resolving]
  - Blood glucose fluctuation [Recovered/Resolved]
  - Initial insomnia [Recovered/Resolved]
  - Drug ineffective [Unknown]
  - Abnormal dreams [Recovered/Resolved]
  - Somnolence [Recovering/Resolving]
